FAERS Safety Report 8877219 (Version 1)
Quarter: 2012Q4

REPORT INFORMATION
  Report Type: 
  Country: US (occurrence: US)
  Receive Date: 20121023
  Receipt Date: 20121023
  Transmission Date: 20130627
  Serious: No
  Sender: FDA-Public Use
  Company Number: US-AMGEN-USASP2012058322

PATIENT
  Age: 63 Year
  Sex: Female
  Weight: 62.73 kg

DRUGS (10)
  1. ENBREL [Suspect]
     Indication: PSORIATIC ARTHROPATHY
     Dosage: 50 mg, qwk
     Route: 058
     Dates: start: 20020101
  2. CALCIUM PLUS D3 [Concomitant]
     Dosage: UNK
  3. CINNAMON                           /01647501/ [Concomitant]
     Dosage: UNK
  4. DIOVAN [Concomitant]
     Dosage: UNK
  5. FISH OIL [Concomitant]
     Dosage: UNK
  6. MAGNESIUM [Concomitant]
     Dosage: UNK
  7. MULTIVITAMINS, PLAIN [Concomitant]
     Dosage: UNK
  8. NIACIN [Concomitant]
     Dosage: UNK
  9. YEAST [Concomitant]
     Dosage: UNK
  10. VITAMIN D /00107901/ [Concomitant]
     Dosage: UNK

REACTIONS (3)
  - Alopecia [Unknown]
  - Contusion [Unknown]
  - Erythema [Unknown]
